FAERS Safety Report 8827501 (Version 3)
Quarter: 2013Q2

REPORT INFORMATION
  Report Type: Report from Study
  Country: JP (occurrence: JP)
  Receive Date: 20121008
  Receipt Date: 20130521
  Transmission Date: 20140414
  Serious: Yes (Hospitalization, Other)
  Sender: FDA-Public Use
  Company Number: JP-009507513-2012SP032445

PATIENT
  Age: 64 Year
  Sex: Male
  Weight: 69 kg

DRUGS (17)
  1. PEGINTRON [Suspect]
     Indication: CHRONIC HEPATITIS C
     Dosage: 1.5 MICROGRAM PER KILOGRAM, QW
     Route: 058
     Dates: start: 20120224, end: 20120302
  2. PEGINTRON [Suspect]
     Dosage: 1.2 MICROGRAM PER KILOGRAM, QW
     Route: 058
     Dates: start: 20120309, end: 20120525
  3. REBETOL [Suspect]
     Indication: CHRONIC HEPATITIS C
     Dosage: 800 MG, QD
     Route: 048
     Dates: start: 20120224, end: 20120412
  4. REBETOL [Suspect]
     Dosage: 600 MG, QD
     Route: 048
     Dates: start: 20120413, end: 20120530
  5. TELAVIC [Suspect]
     Indication: CHRONIC HEPATITIS C
     Dosage: 2250 MG, QD
     Route: 048
     Dates: start: 20120224, end: 20120511
  6. LOXONIN [Suspect]
     Indication: PROPHYLAXIS
     Dosage: 60 MG PER DAY, AS NEEDED
     Route: 048
     Dates: start: 20120224, end: 20120224
  7. LOXONIN [Suspect]
     Indication: ADVERSE EVENT
     Dosage: 60 MG PER DAY, AS NEEDED
     Route: 048
     Dates: start: 20120225, end: 20120322
  8. LOXONIN [Suspect]
     Dosage: 60 MG PER DAY, AS NEEDED
     Route: 048
     Dates: start: 20120519
  9. MUCOSTA [Concomitant]
     Indication: PROPHYLAXIS
     Dosage: 100 MG, PRN
     Route: 048
     Dates: start: 20120309, end: 20120322
  10. MUCOSTA [Concomitant]
     Dosage: 100 MG, PRN
     Dates: start: 20120519
  11. GASTER D [Concomitant]
     Indication: PROPHYLAXIS
     Dosage: 20 MG, PRN
     Route: 048
     Dates: start: 20120323
  12. NERISONA [Concomitant]
     Indication: ERYTHEMA
     Dosage: QUANTITY SUFFICIENT,QD
     Route: 061
     Dates: start: 20120229, end: 20120530
  13. CALONAL [Concomitant]
     Dosage: 400 MG, QD, AS NEEDED
     Route: 048
     Dates: start: 20120323
  14. GLICLAZIDE [Concomitant]
     Dosage: 10 MG, QD
     Route: 048
     Dates: start: 20120511, end: 20120517
  15. ASTOMIN [Concomitant]
     Dosage: 30 MG, QD
     Route: 048
     Dates: start: 20120529
  16. MYSER (CYCLOSERINE) [Concomitant]
     Dosage: QUANTITY SUFFICIENT; MIXTURE OF MYSER OINTMENT AND SALICYLIC ACID PETROLATUM, QD
     Route: 061
     Dates: end: 20120530
  17. [COMPOSITION UNSPECIFIED] [Concomitant]
     Indication: ECZEMA
     Dosage: Q.S, ANTI-DERMOINFECTIVES, ANALGESICS, ANTIPRURITICS,ASTRINGENTS AND  ANTI-INFLAMMATORY AGENTS.
     Route: 061
     Dates: start: 20120227, end: 20120530

REACTIONS (2)
  - Pancytopenia [Recovered/Resolved]
  - Interstitial lung disease [Recovered/Resolved]
